FAERS Safety Report 25972033 (Version 1)
Quarter: 2025Q4

REPORT INFORMATION
  Report Type: Report from Study
  Country: US (occurrence: US)
  Receive Date: 20251029
  Receipt Date: 20251029
  Transmission Date: 20260117
  Serious: Yes (Other)
  Sender: CSL BEHRING
  Company Number: US-BEH-2025222433

PATIENT
  Age: 16 Year
  Sex: Male

DRUGS (1)
  1. GARADACIMAB [Suspect]
     Active Substance: GARADACIMAB
     Indication: Hereditary angioedema
     Dosage: 400 MG
     Route: 058
     Dates: start: 20251009

REACTIONS (1)
  - Hereditary angioedema [Unknown]

NARRATIVE: CASE EVENT DATE: 20251009
